APPROVED DRUG PRODUCT: TRETINOIN
Active Ingredient: TRETINOIN
Strength: 10MG
Dosage Form/Route: CAPSULE;ORAL
Application: A077684 | Product #001
Applicant: BARR LABORATORIES INC
Approved: Jun 22, 2007 | RLD: No | RS: No | Type: DISCN